FAERS Safety Report 10168669 (Version 1)
Quarter: 2014Q2

REPORT INFORMATION
  Report Type: Spontaneous
  Country: US (occurrence: None)
  Receive Date: 20140509
  Receipt Date: 20140509
  Transmission Date: 20141212
  Serious: Yes (Hospitalization)
  Sender: FDA-Public Use
  Company Number: FK201401606

PATIENT
  Age: 38 Year
  Sex: Female
  Weight: 65.77 kg

DRUGS (6)
  1. PROGESTERONE INJECTION USP [Suspect]
     Indication: SUPPORTIVE CARE
     Route: 030
     Dates: start: 20140417, end: 20140424
  2. LOVENOX (ENOXAPARIN SODIUM) [Concomitant]
  3. ESTRACE (ESTRADIOL) [Concomitant]
  4. PRINONE [Concomitant]
  5. SYNTHROID (LEVOTHYROXINE SODIUM) [Concomitant]
  6. DEXAMETHASONE (DEXAMETHASONE) [Concomitant]

REACTIONS (6)
  - Angioedema [None]
  - Urticaria [None]
  - Hypersensitivity [None]
  - Injection site urticaria [None]
  - Lip swelling [None]
  - Eye swelling [None]
